FAERS Safety Report 8788723 (Version 3)
Quarter: 2012Q4

REPORT INFORMATION
  Report Type: Report from Study
  Country: DE (occurrence: DE)
  Receive Date: 20120917
  Receipt Date: 20121008
  Transmission Date: 20130627
  Serious: Yes (Hospitalization, Other)
  Sender: FDA-Public Use
  Company Number: DE-AMGEN-DEUCT2012058192

PATIENT
  Age: 79 Year
  Sex: Female
  Weight: 71.5 kg

DRUGS (2)
  1. ETANERCEPT [Suspect]
     Indication: RHEUMATOID ARTHRITIS
     Dosage: UNK
     Dates: start: 201109
  2. LEFLUNOMIDE [Concomitant]
     Dosage: UNK
     Dates: start: 200606, end: 201110

REACTIONS (3)
  - Diarrhoea [Unknown]
  - Nausea [Unknown]
  - Cardiac failure congestive [Recovered/Resolved]
